FAERS Safety Report 24346564 (Version 1)
Quarter: 2024Q3

REPORT INFORMATION
  Report Type: Spontaneous
  Country: GB (occurrence: GB)
  Receive Date: 20240921
  Receipt Date: 20240921
  Transmission Date: 20241016
  Serious: Yes (Other)
  Sender: AUROBINDO
  Company Number: GB-MHRA-TPP37292821C10525412YC1725869222246

PATIENT
  Age: 34 Year
  Sex: Female
  Weight: 102 kg

DRUGS (10)
  1. DULOXETINE [Suspect]
     Active Substance: DULOXETINE
     Indication: Ill-defined disorder
     Dosage: 60 MILLIGRAM, ONCE A DAY (ONE TO BE TAKEN DAILY)
     Route: 065
     Dates: start: 20240902
  2. COCODAMOL [Concomitant]
     Active Substance: ACETAMINOPHEN\CODEINE PHOSPHATE
     Indication: Ill-defined disorder
     Dosage: UNK UNK, FOUR TIMES/DAY (TAKE 1 OR 2 4 TIMES/DAY)
     Route: 065
     Dates: start: 20240827, end: 20240908
  3. NAPROXEN [Concomitant]
     Active Substance: NAPROXEN
     Indication: Ill-defined disorder
     Dosage: 1 DOSAGE FORM, TWO TIMES A DAY (TAKE ONE TWICE DAILY)
     Route: 065
     Dates: start: 20240624, end: 20240708
  4. NORETHINDRONE [Concomitant]
     Active Substance: NORETHINDRONE
     Indication: Ill-defined disorder
     Dosage: UNK UNK, 3 TIMES A DAY (TO BE TAKEN THREE TIMES DAILY)
     Route: 065
     Dates: start: 20240624, end: 20240704
  5. NORGESTON [Concomitant]
     Indication: Ill-defined disorder
     Dosage: UNK (MINI PILL - TAKE ONE TABLET AT THE SAME TIME EV)
     Route: 065
     Dates: start: 20240719
  6. AMITRIPTYLINE HYDROCHLORIDE [Concomitant]
     Active Substance: AMITRIPTYLINE HYDROCHLORIDE
     Indication: Ill-defined disorder
     Dosage: UNK (ONE TO BE TAKEN AT NIGHT)
     Route: 065
     Dates: start: 20240827
  7. OMEPRAZOLE [Concomitant]
     Active Substance: OMEPRAZOLE
     Indication: Ill-defined disorder
     Dosage: UNK (TAKE ONE OR TWO DAILY)
     Route: 065
     Dates: start: 20230323
  8. DESOGESTREL [Concomitant]
     Active Substance: DESOGESTREL
     Indication: Ill-defined disorder
     Dosage: 1 DOSAGE FORM, DAILY (TAKE ONE DAILY)
     Route: 065
     Dates: start: 20230325, end: 20240719
  9. ONDANSETRON [Concomitant]
     Active Substance: ONDANSETRON
     Indication: Ill-defined disorder
     Dosage: 1 DOSAGE FORM, TWO TIMES A DAY (TAKE ONE TWICE DAILY AS NEEDED FOR SHORT TERM R.)
     Route: 065
     Dates: start: 20230518
  10. BECLOMETHASONE\FORMOTEROL [Concomitant]
     Active Substance: BECLOMETHASONE\FORMOTEROL
     Indication: Ill-defined disorder
     Dosage: UNK (ONE OR TWO PUFFS TO BE INHALED TWICE A DAY AND)
     Dates: start: 20240216

REACTIONS (3)
  - Urinary retention [Recovered/Resolved]
  - Headache [Recovered/Resolved]
  - Malaise [Unknown]
